FAERS Safety Report 17090987 (Version 1)
Quarter: 2019Q4

REPORT INFORMATION
  Report Type: Spontaneous
  Country: NL (occurrence: NL)
  Receive Date: 20191129
  Receipt Date: 20191129
  Transmission Date: 20200122
  Serious: Yes (Other)
  Sender: FDA-Public Use
  Company Number: NL-BRISTOL-MYERS SQUIBB COMPANY-BMS-2019-111633

PATIENT
  Age: 62 Year
  Sex: Female

DRUGS (1)
  1. NIVOLUMAB [Suspect]
     Active Substance: NIVOLUMAB
     Indication: NON-SMALL CELL LUNG CANCER
     Dosage: UNK UNK, Q4WK
     Route: 065

REACTIONS (16)
  - Malaise [Unknown]
  - Fatigue [Unknown]
  - Myalgia [Unknown]
  - Pancreatic failure [Unknown]
  - Bronchitis [Unknown]
  - Decreased appetite [Unknown]
  - Mucosal inflammation [Unknown]
  - Candida infection [Unknown]
  - Pancreatitis [Unknown]
  - Dermatitis [Unknown]
  - Diarrhoea [Unknown]
  - Influenza [Unknown]
  - Dizziness [Unknown]
  - Immune-mediated enterocolitis [Unknown]
  - Paronychia [Unknown]
  - Hypophysitis [Unknown]
